FAERS Safety Report 16770612 (Version 1)
Quarter: 2019Q3

REPORT INFORMATION
  Report Type: Spontaneous
  Country: IN (occurrence: IN)
  Receive Date: 20190904
  Receipt Date: 20190904
  Transmission Date: 20191005
  Serious: Yes (Hospitalization)
  Sender: FDA-Public Use
  Company Number: IN-SUN PHARMACEUTICAL INDUSTRIES LTD-2019R1-218906

PATIENT
  Age: 58 Year
  Sex: Male

DRUGS (2)
  1. ANTIBIOTICS [Concomitant]
     Active Substance: UNSPECIFIED INGREDIENT
     Indication: INFECTION
     Dosage: UNK
     Route: 065
  2. CIPROFLOXACIN. [Suspect]
     Active Substance: CIPROFLOXACIN
     Indication: INFECTION PROPHYLAXIS
     Dosage: UNK
     Route: 065

REACTIONS (2)
  - Inappropriate antidiuretic hormone secretion [Unknown]
  - Hyponatraemia [Unknown]
